FAERS Safety Report 5585248-5 (Version None)
Quarter: 2008Q1

REPORT INFORMATION
  Report Type: 
  Country: None (occurrence: None)
  Receive Date: 20080104
  Receipt Date: 20080104
  Transmission Date: 20080703
  Serious: Yes (Other)
  Sender: FDA-Public Use
  Company Number: None

PATIENT
  Age: 44 Year
  Sex: Female
  Weight: 81.6475 kg

DRUGS (1)
  1. ARAVA [Suspect]
     Indication: RHEUMATOID ARTHRITIS
     Dosage: 1 TABLET DAILY PO
     Route: 048
     Dates: start: 20071113, end: 20071217

REACTIONS (2)
  - ATRIAL FLUTTER [None]
  - BLOOD PRESSURE INCREASED [None]
